FAERS Safety Report 15512687 (Version 1)
Quarter: 2018Q4

REPORT INFORMATION
  Report Type: Spontaneous
  Country: US (occurrence: US)
  Receive Date: 20181016
  Receipt Date: 20181016
  Transmission Date: 20190205
  Serious: No
  Sender: FDA-Public Use
  Company Number: US-AMGEN-USASP2018093827

PATIENT
  Age: 38 Year
  Sex: Female
  Weight: 129 kg

DRUGS (1)
  1. NEULASTA [Suspect]
     Active Substance: PEGFILGRASTIM
     Indication: PROPHYLAXIS
     Dosage: 6 MG, UNK
     Route: 058

REACTIONS (2)
  - Accidental exposure to product [Unknown]
  - Application site discomfort [Unknown]

NARRATIVE: CASE EVENT DATE: 20180626
